FAERS Safety Report 8815732 (Version 1)
Quarter: 2012Q4

REPORT INFORMATION
  Report Type: 
  Country: US (occurrence: US)
  Receive Date: 20120928
  Receipt Date: 20120928
  Transmission Date: 20130627
  Serious: Yes (Death)
  Sender: FDA-Public Use
  Company Number: US-ROCHE-1130112

PATIENT
  Sex: Male

DRUGS (6)
  1. HERCEPTIN [Suspect]
     Indication: PROSTATE CANCER
     Route: 065
  2. HERCEPTIN [Suspect]
     Dosage: 2 mg/kg
     Route: 065
  3. NAVELBINE [Concomitant]
     Dosage: 20 mg/sq.m
     Route: 065
  4. AREDIA [Concomitant]
     Dosage: 90
     Route: 042
  5. EPO [Concomitant]
     Dosage: 40
     Route: 058
  6. DIETHYLSTILBESTROL [Concomitant]
     Route: 065

REACTIONS (1)
  - Death [Fatal]
